FAERS Safety Report 12579949 (Version 5)
Quarter: 2019Q3

REPORT INFORMATION
  Report Type: Spontaneous
  Country: US (occurrence: US)
  Receive Date: 20160721
  Receipt Date: 20190906
  Transmission Date: 20191004
  Serious: Yes (Death, Hospitalization, Other)
  Sender: FDA-Public Use
  Company Number: US-ASTRAZENECA-2016SE76991

PATIENT
  Age: 20125 Day
  Sex: Male
  Weight: 98.4 kg

DRUGS (42)
  1. ONGLYZA [Suspect]
     Active Substance: SAXAGLIPTIN HYDROCHLORIDE
     Indication: TYPE 2 DIABETES MELLITUS
     Route: 048
     Dates: start: 20150415
  2. ONGLYZA [Suspect]
     Active Substance: SAXAGLIPTIN HYDROCHLORIDE
     Indication: TYPE 2 DIABETES MELLITUS
     Route: 048
     Dates: start: 20150720
  3. PIOGLITAZONE. [Concomitant]
     Active Substance: PIOGLITAZONE
  4. STAXYN [Concomitant]
     Active Substance: VARDENAFIL HYDROCHLORIDE
     Route: 048
     Dates: start: 20131122, end: 20150115
  5. COREG [Concomitant]
     Active Substance: CARVEDILOL
     Route: 048
     Dates: start: 20150317
  6. LEVAQUIN [Concomitant]
     Active Substance: LEVOFLOXACIN
  7. PANTOPRAZOLE [Concomitant]
     Active Substance: PANTOPRAZOLE
  8. VICTOZA [Concomitant]
     Active Substance: LIRAGLUTIDE
  9. NICORETTE MINI [Concomitant]
  10. TRAJENTA [Concomitant]
     Active Substance: LINAGLIPTIN
  11. ZOCOR [Concomitant]
     Active Substance: SIMVASTATIN
     Route: 048
     Dates: end: 20140318
  12. METOPROLOL SUCCINATE. [Concomitant]
     Active Substance: METOPROLOL SUCCINATE
  13. WELCHOL [Concomitant]
     Active Substance: COLESEVELAM HYDROCHLORIDE
  14. ZESTRIL [Concomitant]
     Active Substance: LISINOPRIL
     Route: 048
     Dates: start: 20150317
  15. PRILOSEC [Concomitant]
     Active Substance: OMEPRAZOLE MAGNESIUM
     Route: 048
     Dates: start: 20131018, end: 20140318
  16. PLAVIX [Concomitant]
     Active Substance: CLOPIDOGREL BISULFATE
     Route: 048
     Dates: start: 20150720
  17. NICOTINE. [Concomitant]
     Active Substance: NICOTINE
     Dosage: 21 MG/24HR TRANSDERMAL PATCH 24 HOUR
     Route: 062
     Dates: start: 20170706
  18. PHENERGAN [Concomitant]
     Active Substance: PROMETHAZINE HYDROCHLORIDE
  19. AMARYL [Concomitant]
     Active Substance: GLIMEPIRIDE
     Route: 048
     Dates: start: 20131219, end: 20140704
  20. AMARYL [Concomitant]
     Active Substance: GLIMEPIRIDE
     Route: 048
     Dates: start: 20150317
  21. VOLTAREN [Concomitant]
     Active Substance: DICLOFENAC SODIUM
     Route: 048
     Dates: start: 20131216, end: 20140315
  22. ZOCOR [Concomitant]
     Active Substance: SIMVASTATIN
     Route: 048
     Dates: start: 20150317
  23. COREG [Concomitant]
     Active Substance: CARVEDILOL
     Route: 048
     Dates: end: 20150115
  24. JARDIANCE [Concomitant]
     Active Substance: EMPAGLIFLOZIN
     Route: 048
     Dates: start: 20170427
  25. ONGLYZA [Suspect]
     Active Substance: SAXAGLIPTIN HYDROCHLORIDE
     Indication: TYPE 2 DIABETES MELLITUS
     Route: 048
     Dates: start: 20150516
  26. FLEXERIL [Concomitant]
     Active Substance: CYCLOBENZAPRINE HYDROCHLORIDE
     Route: 048
  27. ZESTRIL [Concomitant]
     Active Substance: LISINOPRIL
     Route: 048
     Dates: start: 20150817
  28. CARVEDILOL. [Concomitant]
     Active Substance: CARVEDILOL
  29. METOPROLOL TARTRATE. [Concomitant]
     Active Substance: METOPROLOL TARTRATE
  30. ONGLYZA [Suspect]
     Active Substance: SAXAGLIPTIN HYDROCHLORIDE
     Indication: TYPE 2 DIABETES MELLITUS
     Route: 048
     Dates: start: 201504, end: 20150615
  31. TRADJENTA [Concomitant]
     Active Substance: LINAGLIPTIN
     Route: 048
     Dates: start: 20131223, end: 20140318
  32. LIPITOR [Concomitant]
     Active Substance: ATORVASTATIN CALCIUM
     Route: 048
     Dates: start: 20150720
  33. NITROSTAT [Concomitant]
     Active Substance: NITROGLYCERIN
     Route: 060
     Dates: start: 20150720
  34. OXYCODONE [Concomitant]
     Active Substance: OXYCODONE
  35. HUMALOG [Concomitant]
     Active Substance: INSULIN LISPRO
  36. METFORMIN [Concomitant]
     Active Substance: METFORMIN HYDROCHLORIDE
  37. LISINOPRIL. [Concomitant]
     Active Substance: LISINOPRIL
  38. INVOKANA [Concomitant]
     Active Substance: CANAGLIFLOZIN
  39. ASPIRIN. [Concomitant]
     Active Substance: ASPIRIN
     Route: 048
  40. ATORVASTATIN CALCIUM. [Concomitant]
     Active Substance: ATORVASTATIN CALCIUM
     Route: 048
     Dates: start: 20150724
  41. HYDROCHLOROTHIAZIDE. [Concomitant]
     Active Substance: HYDROCHLOROTHIAZIDE
  42. DOCUSATE SODIUM. [Concomitant]
     Active Substance: DOCUSATE SODIUM

REACTIONS (9)
  - Coronary artery stenosis [Unknown]
  - Acute myocardial infarction [Unknown]
  - Left ventricular dysfunction [Unknown]
  - Hepatocellular carcinoma [Unknown]
  - Coronary artery disease [Unknown]
  - Myocardial infarction [Unknown]
  - Cardiac failure congestive [Unknown]
  - Hepatic cancer [Fatal]
  - Tricuspid valve incompetence [Unknown]

NARRATIVE: CASE EVENT DATE: 20150115
